FAERS Safety Report 7826628-4 (Version None)
Quarter: 2011Q4

REPORT INFORMATION
  Report Type: 
  Country: None (occurrence: None)
  Receive Date: 20111020
  Receipt Date: 20110812
  Transmission Date: 20120403
  Serious: No
  Sender: FDA-Public Use
  Company Number: US-MYLANLABS-2011S1016865

PATIENT
  Age: 39 Year
  Sex: Female
  Weight: 56.7 kg

DRUGS (2)
  1. BUPROPION HYDROCHLORIDE [Suspect]
     Indication: DEPRESSION
     Route: 048
     Dates: start: 20110401, end: 20110401
  2. VITAMIN TAB [Concomitant]

REACTIONS (4)
  - DEPRESSION [None]
  - DRUG INEFFECTIVE [None]
  - LETHARGY [None]
  - APATHY [None]
